FAERS Safety Report 10514197 (Version 2)
Quarter: 2014Q4

REPORT INFORMATION
  Report Type: Report from Study
  Country: NO (occurrence: NO)
  Receive Date: 20141013
  Receipt Date: 20141013
  Transmission Date: 20150528
  Serious: Yes (Other)
  Sender: FDA-Public Use
  Company Number: NO-BAYER-2014-105462

PATIENT
  Sex: Female

DRUGS (3)
  1. COPPER + SILVER [Suspect]
     Active Substance: COPPER\SILVER
     Dosage: UNK
     Route: 015
     Dates: start: 2006, end: 20140707
  2. MIRENA [Suspect]
     Active Substance: LEVONORGESTREL
     Dosage: 20 MCG/24HR, CONT
     Route: 015
  3. MIRENA [Suspect]
     Active Substance: LEVONORGESTREL
     Dosage: 20 MCG/24HR, CONT
     Route: 015

REACTIONS (3)
  - Genital haemorrhage [None]
  - Anaemia [None]
  - Polymenorrhagia [Recovered/Resolved]

NARRATIVE: CASE EVENT DATE: 2007
